FAERS Safety Report 15693475 (Version 1)
Quarter: 2018Q4

REPORT INFORMATION
  Report Type: Spontaneous
  Country: FR (occurrence: FR)
  Receive Date: 20181206
  Receipt Date: 20181206
  Transmission Date: 20190205
  Serious: Yes (Life-Threatening, Hospitalization)
  Sender: FDA-Public Use
  Company Number: FR-ROCHE-2226212

PATIENT
  Age: 23 Year
  Sex: Female

DRUGS (4)
  1. CLOPIXOL [Suspect]
     Active Substance: ZUCLOPENTHIXOL
     Indication: AGITATION
     Route: 030
     Dates: start: 20171227, end: 20171227
  2. VALIUM [Suspect]
     Active Substance: DIAZEPAM
     Indication: AGITATION
     Route: 030
     Dates: start: 20171227, end: 20171227
  3. LARGACTIL [Suspect]
     Active Substance: CHLORPROMAZINE
     Indication: AGITATION
     Dosage: 25 MG/5 ML
     Route: 030
     Dates: start: 20171227, end: 20171227
  4. LOXAPAC [Suspect]
     Active Substance: LOXAPINE
     Indication: AGITATION
     Dosage: 50 MG/2 ML
     Route: 030
     Dates: start: 20171227, end: 20171227

REACTIONS (2)
  - Respiratory depression [Recovered/Resolved]
  - Altered state of consciousness [Recovered/Resolved]

NARRATIVE: CASE EVENT DATE: 20171228
